FAERS Safety Report 9336960 (Version 1)
Quarter: 2013Q2

REPORT INFORMATION
  Report Type: Spontaneous
  Country: US (occurrence: US)
  Receive Date: 20130607
  Receipt Date: 20130607
  Transmission Date: 20140414
  Serious: No
  Sender: FDA-Public Use
  Company Number: US-PFIZER INC-2013169038

PATIENT
  Age: 66 Year
  Sex: Female
  Weight: 105.67 kg

DRUGS (2)
  1. CELEBREX [Suspect]
     Indication: ARTHRALGIA
     Dosage: 200 MG, 2X/DAY
     Route: 048
     Dates: start: 2012
  2. GABAPENTIN [Concomitant]
     Dosage: 600 MG, 1X/DAY

REACTIONS (4)
  - Hypertension [Unknown]
  - Hypotension [Unknown]
  - Pain [Unknown]
  - Nervousness [Unknown]
